FAERS Safety Report 14416670 (Version 2)
Quarter: 2018Q1

REPORT INFORMATION
  Report Type: Report from Study
  Country: None (occurrence: RO)
  Receive Date: 20180122
  Receipt Date: 20180124
  Transmission Date: 20180509
  Serious: Yes (Hospitalization)
  Sender: FDA-Public Use
  Company Number: RO-ABBVIE-18K-135-2229303-00

PATIENT
  Age: 71 Year
  Sex: Male

DRUGS (3)
  1. HUMIRA [Suspect]
     Active Substance: ADALIMUMAB
     Indication: PSORIASIS
     Route: 058
     Dates: start: 20091215
  2. CAPTOPRIL. [Concomitant]
     Active Substance: CAPTOPRIL
     Indication: CARDIAC DISORDER
     Route: 048
  3. ENAP [Concomitant]
     Active Substance: ENALAPRIL
     Indication: CARDIAC DISORDER
     Route: 048

REACTIONS (6)
  - Abdominal pain upper [Not Recovered/Not Resolved]
  - Wound complication [Recovered/Resolved]
  - Asthenia [Not Recovered/Not Resolved]
  - Blood pressure increased [Recovered/Resolved]
  - Dizziness [Not Recovered/Not Resolved]
  - Skin lesion [Recovering/Resolving]

NARRATIVE: CASE EVENT DATE: 2017
